FAERS Safety Report 4455798-3 (Version None)
Quarter: 2004Q3

REPORT INFORMATION
  Report Type: 
  Country: None (occurrence: None)
  Receive Date: 20040920
  Receipt Date: 20040310
  Transmission Date: 20050211
  Serious: Yes (Hospitalization)
  Sender: FDA-Public Use
  Company Number: 03-0073 FOLLOW UP 2

PATIENT
  Age: 4 Year
  Sex: Female
  Weight: 20 kg

DRUGS (1)
  1. PONSTEL [Suspect]
     Indication: ILL-DEFINED DISORDER
     Dosage: 69 TABS, ONCE, PO
     Route: 048

REACTIONS (3)
  - OVERDOSE [None]
  - VICTIM OF CRIME [None]
  - VOMITING [None]
